FAERS Safety Report 7965779-0 (Version None)
Quarter: 2011Q4

REPORT INFORMATION
  Report Type: 
  Country: None (occurrence: None)
  Receive Date: 20111208
  Receipt Date: 20111129
  Transmission Date: 20120403
  Serious: Yes (Hospitalization)
  Sender: FDA-Public Use
  Company Number: US-ELI_LILLY_AND_COMPANY-US201112000554

PATIENT
  Sex: Male

DRUGS (4)
  1. HUMALOG [Suspect]
     Dosage: 10 U, QD
  2. HUMALOG [Suspect]
     Dosage: 300 U, QD
     Dates: start: 20010101
  3. LEVEMIR [Concomitant]
     Dosage: 10 U, QD
  4. HUMALOG [Suspect]
     Indication: DIABETES MELLITUS
     Dosage: 300 U, QD
     Dates: start: 20010101

REACTIONS (1)
  - GASTRIC BYPASS [None]
